FAERS Safety Report 12741722 (Version 1)
Quarter: 2016Q3

REPORT INFORMATION
  Report Type: Spontaneous
  Country: US (occurrence: US)
  Receive Date: 20160913
  Receipt Date: 20160913
  Transmission Date: 20161109
  Serious: No
  Sender: FDA-Public Use
  Company Number: None

PATIENT
  Age: 65 Year
  Sex: Female
  Weight: 69.75 kg

DRUGS (11)
  1. CLINDAMYCIN HCI 300MG CAP [Suspect]
     Active Substance: CLINDAMYCIN HYDROCHLORIDE
     Indication: ENDODONTIC PROCEDURE
     Route: 048
  2. BENEFIBER [Concomitant]
     Active Substance: STARCH, WHEAT
  3. CENTRUM SILVER FOR WOMEN [Concomitant]
     Active Substance: MINERALS\VITAMINS
  4. CALTRATE WITH VITAMIN D [Concomitant]
     Active Substance: CALCIUM CARBONATE\CHOLECALCIFEROL
  5. ZYRTEX [Concomitant]
  6. HYZAAR [Concomitant]
     Active Substance: HYDROCHLOROTHIAZIDE\LOSARTAN POTASSIUM
  7. ASPIRIN. [Concomitant]
     Active Substance: ASPIRIN
  8. CRANBERRY PILLS [Concomitant]
  9. PRAVACHOL [Concomitant]
     Active Substance: PRAVASTATIN SODIUM
  10. OMEPRAZOLE. [Concomitant]
     Active Substance: OMEPRAZOLE
  11. FLONASE [Concomitant]
     Active Substance: FLUTICASONE PROPIONATE

REACTIONS (2)
  - Toothache [None]
  - Gingival disorder [None]

NARRATIVE: CASE EVENT DATE: 20160904
